FAERS Safety Report 6614296-9 (Version None)
Quarter: 2010Q1

REPORT INFORMATION
  Report Type: 
  Country: None (occurrence: None)
  Receive Date: 20100303
  Receipt Date: 20100303
  Transmission Date: 20100710
  Serious: Yes (Hospitalization)
  Sender: FDA-Public Use
  Company Number: None

PATIENT
  Age: 55 Year
  Sex: Male
  Weight: 99.7913 kg

DRUGS (6)
  1. NAPROXEN [Suspect]
     Indication: INFLAMMATION
     Dosage: 500MG BID PO
     Route: 048
     Dates: start: 20090531, end: 20091211
  2. NAPROXEN [Suspect]
     Indication: PAIN
     Dosage: 500MG BID PO
     Route: 048
     Dates: start: 20090531, end: 20091211
  3. IBUPROFEN TABLETS [Suspect]
     Indication: ABDOMINAL PAIN
     Dosage: 200MG  PO
     Route: 048
     Dates: start: 20091101, end: 20091211
  4. IBUPROFEN TABLETS [Suspect]
     Indication: SELF-MEDICATION
     Dosage: 200MG  PO
     Route: 048
     Dates: start: 20091101, end: 20091211
  5. CLINDAMYCIN [Concomitant]
  6. LISINOPRIL [Concomitant]

REACTIONS (3)
  - ABDOMINAL PAIN [None]
  - GASTROINTESTINAL ULCER HAEMORRHAGE [None]
  - SELF-MEDICATION [None]
